FAERS Safety Report 6581399-7 (Version None)
Quarter: 2010Q1

REPORT INFORMATION
  Report Type: 
  Country: None (occurrence: None)
  Receive Date: 20100215
  Receipt Date: 20100204
  Transmission Date: 20100710
  Serious: Yes (Death)
  Sender: FDA-Public Use
  Company Number: GB-JNJFOC-20100203754

PATIENT
  Age: 26 Year
  Sex: Male

DRUGS (9)
  1. PARACETAMOL [Suspect]
  2. PARACETAMOL [Suspect]
     Indication: DRUG USE FOR UNKNOWN INDICATION
  3. OXYCODONE HCL [Suspect]
     Indication: DRUG USE FOR UNKNOWN INDICATION
  4. MORPHINE [Suspect]
     Indication: DRUG USE FOR UNKNOWN INDICATION
  5. COCAINE [Suspect]
     Indication: DRUG USE FOR UNKNOWN INDICATION
  6. NORDAZEPAM [Suspect]
     Indication: DRUG USE FOR UNKNOWN INDICATION
  7. DIAZEPAM [Suspect]
     Indication: DRUG USE FOR UNKNOWN INDICATION
  8. ALCOHOL [Suspect]
     Indication: DRUG USE FOR UNKNOWN INDICATION
  9. CITALOPRAM [Concomitant]
     Indication: DEPRESSION

REACTIONS (1)
  - MULTIPLE DRUG OVERDOSE [None]
